FAERS Safety Report 4679156-1 (Version None)
Quarter: 2005Q2

REPORT INFORMATION
  Report Type: 
  Country: None (occurrence: None)
  Receive Date: 20050527
  Receipt Date: 20050410
  Transmission Date: 20051028
  Serious: No
  Sender: FDA-Public Use
  Company Number: S05-USA-02496-01

PATIENT
  Age: 58 Year
  Sex: Female
  Weight: 95.2554 kg

DRUGS (9)
  1. CAMPRAL [Suspect]
     Indication: ABSTAINS FROM ALCOHOL
     Dosage: 666 MG TID PO
     Route: 048
     Dates: start: 20050330, end: 20050404
  2. CAMPRAL [Suspect]
     Indication: ABSTAINS FROM ALCOHOL
     Dosage: 666 MG QD PO
     Route: 048
     Dates: start: 20050406, end: 20050406
  3. CAMPRAL [Suspect]
     Indication: ABSTAINS FROM ALCOHOL
     Dosage: 666 MG BID PO
     Route: 048
     Dates: start: 20050329, end: 20050329
  4. DEPAKOTE [Concomitant]
  5. ZOLOFT [Concomitant]
  6. BUSPAR [Concomitant]
  7. NALTREXONE [Concomitant]
  8. TOPAMAX [Concomitant]
  9. SULAR [Concomitant]

REACTIONS (4)
  - ARTHRALGIA [None]
  - BRONCHITIS [None]
  - MUSCULOSKELETAL STIFFNESS [None]
  - MYALGIA [None]
